FAERS Safety Report 9883159 (Version 2)
Quarter: 2014Q1

REPORT INFORMATION
  Report Type: Report from Study
  Country: DE (occurrence: DE)
  Receive Date: 20140208
  Receipt Date: 20140226
  Transmission Date: 20141002
  Serious: Yes (Other)
  Sender: FDA-Public Use
  Company Number: DE-ROCHE-1341596

PATIENT
  Age: 92 Year
  Sex: Female

DRUGS (1)
  1. ERIVEDGE [Suspect]
     Indication: BASAL CELL CARCINOMA
     Route: 065
     Dates: start: 20130911, end: 20131205

REACTIONS (4)
  - Squamous cell carcinoma [Recovered/Resolved]
  - Weight decreased [Recovering/Resolving]
  - Ageusia [Recovered/Resolved]
  - Muscle spasms [Recovered/Resolved]
